FAERS Safety Report 18224469 (Version 1)
Quarter: 2020Q3

REPORT INFORMATION
  Report Type: Spontaneous
  Country: US (occurrence: US)
  Receive Date: 20200902
  Receipt Date: 20200902
  Transmission Date: 20201103
  Serious: No
  Sender: FDA-Public Use
  Company Number: US-PURDUE-USA-2020-0149798

PATIENT
  Age: 57 Year
  Sex: Female

DRUGS (1)
  1. OXYCODONE/ ACETAMINOPHEN TABLETS [Suspect]
     Active Substance: ACETAMINOPHEN\OXYCODONE HYDROCHLORIDE
     Indication: PAIN
     Dosage: 1 TABLET, 7.5/325 MG
     Route: 048

REACTIONS (2)
  - Drug ineffective [Unknown]
  - Pruritus [Unknown]

NARRATIVE: CASE EVENT DATE: 20200128
